FAERS Safety Report 21758928 (Version 3)
Quarter: 2023Q1

REPORT INFORMATION
  Report Type: Report from Study
  Country: US (occurrence: US)
  Receive Date: 20221221
  Receipt Date: 20230118
  Transmission Date: 20230418
  Serious: Yes (Other)
  Sender: FDA-Public Use
  Company Number: US-ABBVIE-4242906

PATIENT
  Age: 45 Year
  Sex: Female
  Weight: 82 kg

DRUGS (8)
  1. HUMIRA [Suspect]
     Active Substance: ADALIMUMAB
     Indication: Ankylosing spondylitis
     Route: 058
     Dates: start: 202202, end: 202207
  2. HUMIRA [Suspect]
     Active Substance: ADALIMUMAB
     Indication: Rheumatoid arthritis
     Route: 058
     Dates: start: 202208
  3. HUMIRA [Suspect]
     Active Substance: ADALIMUMAB
     Route: 058
  4. METHOTREXATE [Concomitant]
     Active Substance: METHOTREXATE
     Indication: Product used for unknown indication
     Dosage: 4 MG
  5. LEVOTHYROXINE [Concomitant]
     Active Substance: LEVOTHYROXINE
     Indication: Hypothyroidism
  6. FOLIC ACID [Concomitant]
     Active Substance: FOLIC ACID
     Indication: Product used for unknown indication
  7. VITAMIN D [Concomitant]
     Active Substance: VITAMIN D NOS
     Indication: Product used for unknown indication
  8. BUPROPION [Concomitant]
     Active Substance: BUPROPION
     Indication: Depression

REACTIONS (9)
  - Deafness unilateral [Recovered/Resolved]
  - Ankylosing spondylitis [Recovered/Resolved]
  - COVID-19 [Recovered/Resolved]
  - Gait disturbance [Recovered/Resolved]
  - Inflammation [Not Recovered/Not Resolved]
  - Musculoskeletal disorder [Unknown]
  - Chest discomfort [Unknown]
  - Swelling [Not Recovered/Not Resolved]
  - COVID-19 [Unknown]

NARRATIVE: CASE EVENT DATE: 20220701
